FAERS Safety Report 17136247 (Version 1)
Quarter: 2019Q4

REPORT INFORMATION
  Report Type: Spontaneous
  Country: US (occurrence: US)
  Receive Date: 20191210
  Receipt Date: 20191210
  Transmission Date: 20200122
  Serious: No
  Sender: FDA-Public Use
  Company Number: US-BAUSCH-BL-2019-059020

PATIENT
  Sex: Female

DRUGS (2)
  1. LACRISERT [Suspect]
     Active Substance: HYDROXYPROPYL CELLULOSE
     Indication: DRY EYE
     Dosage: USING DAILY
     Route: 047
     Dates: end: 2019
  2. LACRISERT [Suspect]
     Active Substance: HYDROXYPROPYL CELLULOSE
     Dosage: USING EVERY 2-3 DAYS
     Route: 047
     Dates: start: 2019

REACTIONS (5)
  - Eye irritation [Unknown]
  - Eye pain [Unknown]
  - Product availability issue [Unknown]
  - Ocular hyperaemia [Unknown]
  - Intentional dose omission [Unknown]

NARRATIVE: CASE EVENT DATE: 2019
